FAERS Safety Report 4832872-0 (Version None)
Quarter: 2005Q4

REPORT INFORMATION
  Report Type: 
  Country: None (occurrence: None)
  Receive Date: 20051121
  Receipt Date: 20051114
  Transmission Date: 20060501
  Serious: Yes (Hospitalization)
  Sender: FDA-Public Use
  Company Number: BR-GLAXOSMITHKLINE-A0582801A

PATIENT
  Age: 72 Year
  Sex: Female
  Weight: 57 kg

DRUGS (3)
  1. AVANDAMET [Suspect]
     Dosage: 1TAB PER DAY
     Route: 048
     Dates: start: 20041115, end: 20050928
  2. EUTHYROX [Concomitant]
     Route: 048
     Dates: start: 20021101
  3. DICLOFENAC [Concomitant]
     Route: 048
     Dates: start: 20050901, end: 20050928

REACTIONS (8)
  - CHILLS [None]
  - DIARRHOEA [None]
  - DIZZINESS [None]
  - GASTROINTESTINAL ULCER [None]
  - HYPOGLYCAEMIA [None]
  - RETCHING [None]
  - TREMOR [None]
  - VISION BLURRED [None]
